FAERS Safety Report 17725902 (Version 1)
Quarter: 2020Q2

REPORT INFORMATION
  Report Type: Report from Study
  Country: GB (occurrence: GB)
  Receive Date: 20200429
  Receipt Date: 20200429
  Transmission Date: 20200714
  Serious: Yes (Life-Threatening, Other)
  Sender: FDA-Public Use
  Company Number: NVSC2020GB115591

PATIENT
  Sex: Male
  Weight: 94 kg

DRUGS (1)
  1. COSENTYX [Suspect]
     Active Substance: SECUKINUMAB
     Indication: PSORIASIS
     Dosage: 300 MG, QMO
     Route: 065
     Dates: start: 20161016

REACTIONS (6)
  - Anxiety [Unknown]
  - Hallucination, auditory [Unknown]
  - Suicide attempt [Unknown]
  - Suicidal ideation [Unknown]
  - Depression suicidal [Unknown]
  - Intentional overdose [Unknown]

NARRATIVE: CASE EVENT DATE: 20190329
